FAERS Safety Report 20627472 (Version 6)
Quarter: 2025Q1

REPORT INFORMATION
  Report Type: Report from Study
  Country: US (occurrence: US)
  Receive Date: 20220323
  Receipt Date: 20250220
  Transmission Date: 20250409
  Serious: Yes (Other)
  Sender: TAKEDA
  Company Number: US-TAKEDA-2021TUS055416

PATIENT
  Age: 61 Year
  Sex: Male
  Weight: 92.9 kg

DRUGS (5)
  1. BRIGATINIB [Suspect]
     Active Substance: BRIGATINIB
     Indication: Lung neoplasm malignant
     Dosage: 180 MILLIGRAM, QD
     Dates: start: 20210803
  2. BRIGATINIB [Suspect]
     Active Substance: BRIGATINIB
     Dosage: 180 MILLIGRAM, QD
  3. BRIGATINIB [Suspect]
     Active Substance: BRIGATINIB
     Dosage: 180 MILLIGRAM, QD
     Dates: start: 20210803
  4. BRIGATINIB [Suspect]
     Active Substance: BRIGATINIB
     Dosage: 180 MILLIGRAM, QD
  5. BRIGATINIB [Suspect]
     Active Substance: BRIGATINIB
     Dosage: 180 MILLIGRAM, QD

REACTIONS (13)
  - Metastases to central nervous system [Unknown]
  - Neuropathy peripheral [Unknown]
  - Memory impairment [Unknown]
  - Skin laceration [Unknown]
  - Pain of skin [Not Recovered/Not Resolved]
  - Sensitive skin [Unknown]
  - Skin atrophy [Unknown]
  - Increased tendency to bruise [Not Recovered/Not Resolved]
  - Product dose omission issue [Unknown]
  - Skin laceration [Unknown]
  - Pain in extremity [Unknown]
  - Blood pressure increased [Recovered/Resolved]
  - Blood cholesterol increased [Recovered/Resolved]

NARRATIVE: CASE EVENT DATE: 20220601
